FAERS Safety Report 6003439-6 (Version None)
Quarter: 2008Q4

REPORT INFORMATION
  Report Type: 
  Country: None (occurrence: None)
  Receive Date: 20081216
  Receipt Date: 20081210
  Transmission Date: 20090506
  Serious: Yes (Other)
  Sender: FDA-Public Use
  Company Number: BA-BRISTOL-MYERS SQUIBB COMPANY-14439814

PATIENT
  Age: 60 Year
  Sex: Female

DRUGS (1)
  1. TAXOL INJ 100 MG/16.7 ML [Suspect]
     Indication: BREAST CANCER
     Dosage: INITIATED ON 10NOV08
     Route: 042
     Dates: start: 20081202, end: 20081202

REACTIONS (5)
  - BACK PAIN [None]
  - DYSPNOEA [None]
  - FLUSHING [None]
  - HYPERTENSION [None]
  - TACHYCARDIA [None]
